FAERS Safety Report 5627654-6 (Version None)
Quarter: 2008Q1

REPORT INFORMATION
  Report Type: 
  Country: None (occurrence: None)
  Receive Date: 20080214
  Receipt Date: 20080214
  Transmission Date: 20080703
  Serious: Yes (Other)
  Sender: FDA-Public Use
  Company Number: None

PATIENT
  Age: 66 Year
  Sex: Male
  Weight: 70.3075 kg

DRUGS (2)
  1. PRECEDEX [Suspect]
     Indication: BLOOD PRESSURE MANAGEMENT
     Dosage: 100 MGS.  4 TIMES  IV
     Route: 042
     Dates: start: 20071016, end: 20071017
  2. PRECEDEX [Suspect]
     Indication: PAIN
     Dosage: 100 MGS.  4 TIMES  IV
     Route: 042
     Dates: start: 20071016, end: 20071017

REACTIONS (7)
  - BLOOD PRESSURE DECREASED [None]
  - CHEST PAIN [None]
  - DYSPNOEA [None]
  - FEELING ABNORMAL [None]
  - OXYGEN SATURATION DECREASED [None]
  - THERAPEUTIC RESPONSE UNEXPECTED [None]
  - VASCULAR GRAFT COMPLICATION [None]
